FAERS Safety Report 5289420-3 (Version None)
Quarter: 2007Q2

REPORT INFORMATION
  Report Type: 
  Country: None (occurrence: None)
  Receive Date: 20070406
  Receipt Date: 20070322
  Transmission Date: 20071010
  Serious: Yes (Hospitalization)
  Sender: FDA-Public Use
  Company Number: US-JNJFOC-20070205292

PATIENT
  Sex: Female
  Weight: 67.59 kg

DRUGS (6)
  1. INFLIXIMAB [Suspect]
     Indication: RHEUMATOID ARTHRITIS
     Route: 042
  2. SIMVASTATIN [Concomitant]
  3. OCUVITE [Concomitant]
  4. DARVOCET-N 100 [Concomitant]
  5. VIACTIV [Concomitant]
  6. VITAMIN CAP [Concomitant]

REACTIONS (5)
  - ANGIOPLASTY [None]
  - ARTERIAL REPAIR [None]
  - CAROTID ARTERY STENOSIS [None]
  - CORONARY ARTERY DISEASE [None]
  - PULMONARY FIBROSIS [None]
